FAERS Safety Report 20807391 (Version 1)
Quarter: 2022Q2

REPORT INFORMATION
  Report Type: Spontaneous
  Country: US (occurrence: US)
  Receive Date: 20220510
  Receipt Date: 20220510
  Transmission Date: 20220720
  Serious: Yes (Hospitalization, Other)
  Sender: FDA-Public Use
  Company Number: US-SA-SAC20220506001467

PATIENT
  Age: 41 Year
  Sex: Female

DRUGS (1)
  1. DUPIXENT [Suspect]
     Active Substance: DUPILUMAB
     Indication: Dermatitis atopic
     Dosage: 300 MG, QOW
     Route: 058

REACTIONS (9)
  - Fall [Recovering/Resolving]
  - Chest injury [Recovering/Resolving]
  - Hepatic steatosis [Recovering/Resolving]
  - Varices oesophageal [Recovering/Resolving]
  - Portal vein embolism [Recovering/Resolving]
  - Abdominal distension [Recovering/Resolving]
  - Yellow skin [Recovering/Resolving]
  - Eye colour change [Recovering/Resolving]
  - Fluid retention [Recovering/Resolving]

NARRATIVE: CASE EVENT DATE: 20220301
